FAERS Safety Report 5356667-7 (Version None)
Quarter: 2007Q2

REPORT INFORMATION
  Report Type: 
  Country: None (occurrence: None)
  Receive Date: 20070611
  Receipt Date: 20070529
  Transmission Date: 20071010
  Serious: Yes (Other)
  Sender: FDA-Public Use
  Company Number: 236752K06USA

PATIENT
  Age: 62 Year
  Sex: Female
  Weight: 42.1845 kg

DRUGS (4)
  1. REBIF [Suspect]
     Indication: MULTIPLE SCLEROSIS
     Dosage: 44 MCG, 3 IN 1 WEEKS, SUBCUTANEOUS
     Route: 058
     Dates: start: 20021004
  2. TYLENOL (COTYLENOL) [Concomitant]
  3. ATACAND [Concomitant]
  4. DETROL [Concomitant]

REACTIONS (1)
  - DIABETES MELLITUS [None]
